FAERS Safety Report 6071688-7 (Version None)
Quarter: 2009Q1

REPORT INFORMATION
  Report Type: 
  Country: None (occurrence: None)
  Receive Date: 20090210
  Receipt Date: 20090205
  Transmission Date: 20090719
  Serious: Yes (Other)
  Sender: FDA-Public Use
  Company Number: ES-BRISTOL-MYERS SQUIBB COMPANY-14496442

PATIENT
  Age: 74 Year
  Sex: Male

DRUGS (1)
  1. SPRYCEL [Suspect]
     Indication: CHRONIC MYELOID LEUKAEMIA
     Dosage: INITIATED AT A DOSE OF 100 MG/DAY.
     Route: 048
     Dates: start: 20081001

REACTIONS (4)
  - CONFUSIONAL STATE [None]
  - THROMBOCYTOPENIA [None]
  - URINARY RETENTION [None]
  - WEIGHT DECREASED [None]
